FAERS Safety Report 8043604-X (Version None)
Quarter: 2012Q1

REPORT INFORMATION
  Report Type: 
  Country: None (occurrence: None)
  Receive Date: 20120112
  Receipt Date: 20120103
  Transmission Date: 20120608
  Serious: Yes (Hospitalization)
  Sender: FDA-Public Use
  Company Number: US-ASTRAZENECA-2011SE55681

PATIENT
  Age: 27 Year
  Sex: Female
  Weight: 55.8 kg

DRUGS (23)
  1. SEROQUEL [Suspect]
     Route: 048
     Dates: start: 20110803
  2. SEROQUEL [Suspect]
     Route: 048
  3. LAMICTAL [Suspect]
     Dosage: 300 MGS AM 100 MGS HS
  4. SEROQUEL [Suspect]
     Route: 048
  5. SEROQUEL [Suspect]
     Route: 048
     Dates: start: 20110803
  6. SEROQUEL [Suspect]
     Indication: BIPOLAR DISORDER
     Route: 048
     Dates: start: 20110718
  7. SEROQUEL [Suspect]
     Indication: BIPOLAR I DISORDER
     Route: 048
     Dates: start: 20110718
  8. SEROQUEL [Suspect]
     Route: 048
  9. SEROQUEL [Suspect]
     Route: 048
  10. SEROQUEL [Suspect]
     Route: 048
     Dates: start: 20110803
  11. SEROQUEL [Suspect]
     Route: 048
     Dates: start: 20110803
  12. LORAZEPAM [Concomitant]
     Indication: ANXIOLYTIC THERAPY
  13. ATIVAN [Concomitant]
     Indication: SLEEP DISORDER
  14. SEROQUEL [Suspect]
     Route: 048
     Dates: start: 20110803
  15. SEROQUEL [Suspect]
     Route: 048
  16. LAMICTAL [Suspect]
     Indication: MOOD SWINGS
     Route: 048
  17. CARBATROL [Suspect]
     Route: 065
     Dates: start: 20110718
  18. ATIVAN [Concomitant]
     Dosage: HS
  19. SEROQUEL [Suspect]
     Route: 048
     Dates: start: 20110803
  20. SEROQUEL [Suspect]
     Route: 048
  21. SEROQUEL [Suspect]
     Route: 048
  22. LAMICTAL [Suspect]
     Route: 048
  23. SEROQUEL [Suspect]
     Route: 048

REACTIONS (17)
  - FEELING ABNORMAL [None]
  - AGITATION [None]
  - HYPOMANIA [None]
  - ABNORMAL BEHAVIOUR [None]
  - THIRST [None]
  - DRUG DOSE OMISSION [None]
  - INSOMNIA [None]
  - RASH GENERALISED [None]
  - MANIA [None]
  - HEART RATE IRREGULAR [None]
  - RASH [None]
  - MUSCLE SPASMS [None]
  - ANXIETY [None]
  - NERVOUSNESS [None]
  - PALPITATIONS [None]
  - CHEST PAIN [None]
  - AMNESIA [None]
